FAERS Safety Report 17816682 (Version 2)
Quarter: 2020Q2

REPORT INFORMATION
  Report Type: Report from Study
  Country: IN (occurrence: IN)
  Receive Date: 20200522
  Receipt Date: 20200602
  Transmission Date: 20200714
  Serious: Yes (Other)
  Sender: FDA-Public Use
  Company Number: NVSC2020IN107647

PATIENT
  Age: 62 Year
  Sex: Male
  Weight: 79.4 kg

DRUGS (3)
  1. GALVUS MET [Suspect]
     Active Substance: METFORMIN HYDROCHLORIDE\VILDAGLIPTIN
     Indication: DIABETES MELLITUS
     Dosage: 1 DF (50/500), BID (1-0-1)
     Route: 048
     Dates: start: 2017
  2. GLUCONORM [Concomitant]
     Indication: DIABETES MELLITUS
     Dosage: 1 DF, QD (0-0-1) (500, UNITS NOT REPORTED)
     Route: 048
  3. GALVUS MET [Suspect]
     Active Substance: METFORMIN HYDROCHLORIDE\VILDAGLIPTIN
     Dosage: 1 DF (50/1000), BID (1-0-1),(POST MEAL)
     Route: 048

REACTIONS (9)
  - Blood urea increased [Unknown]
  - Blood triglycerides increased [Unknown]
  - Blood cholesterol increased [Unknown]
  - Glycosylated haemoglobin increased [Unknown]
  - Blood uric acid increased [Unknown]
  - Cough [Not Recovered/Not Resolved]
  - Hyperglycaemia [Unknown]
  - Overweight [Unknown]
  - Nasopharyngitis [Not Recovered/Not Resolved]

NARRATIVE: CASE EVENT DATE: 20200421
